FAERS Safety Report 5792335-5 (Version None)
Quarter: 2008Q2

REPORT INFORMATION
  Report Type: 
  Country: None (occurrence: None)
  Receive Date: 20080626
  Receipt Date: 20080623
  Transmission Date: 20081010
  Serious: Yes (Life-Threatening, Other)
  Sender: FDA-Public Use
  Company Number: US-ELI_LILLY_AND_COMPANY-US200806005084

PATIENT
  Sex: Female

DRUGS (2)
  1. HUMULIN 70/30 [Suspect]
     Dates: start: 20010101
  2. HUMULIN 70/30 [Suspect]
     Dates: start: 20010101

REACTIONS (4)
  - AMNESIA [None]
  - BLOOD GLUCOSE INCREASED [None]
  - CARDIAC OPERATION [None]
  - DEAFNESS [None]
